FAERS Safety Report 6765531-8 (Version None)
Quarter: 2010Q2

REPORT INFORMATION
  Report Type: 
  Country: None (occurrence: None)
  Receive Date: 20100611
  Receipt Date: 20100603
  Transmission Date: 20101027
  Serious: Yes (Hospitalization)
  Sender: FDA-Public Use
  Company Number: US-JNJFOC-20100602650

PATIENT
  Age: 68 Year
  Sex: Male

DRUGS (7)
  1. IMODIUM [Suspect]
     Indication: DIARRHOEA
     Route: 065
  2. CAMPTOSAR [Suspect]
     Indication: COLORECTAL CANCER METASTATIC
     Route: 042
  3. LEUCOVORIN CALCIUM [Suspect]
     Indication: COLORECTAL CANCER METASTATIC
     Route: 042
  4. FLUOROURACIL [Suspect]
     Indication: COLORECTAL CANCER METASTATIC
     Route: 042
  5. CETUXIMAB [Suspect]
     Indication: COLORECTAL CANCER METASTATIC
     Route: 042
  6. CETUXIMAB [Suspect]
     Route: 042
  7. LOMOTIL [Suspect]
     Indication: DIARRHOEA
     Route: 065

REACTIONS (4)
  - ABDOMINAL PAIN [None]
  - COLONIC OBSTRUCTION [None]
  - DRUG INEFFECTIVE [None]
  - SMALL INTESTINAL OBSTRUCTION [None]
